FAERS Safety Report 9057805 (Version 1)
Quarter: 2013Q1

REPORT INFORMATION
  Report Type: Spontaneous
  Country: US (occurrence: None)
  Receive Date: 20130204
  Receipt Date: 20130204
  Transmission Date: 20140127
  Serious: No
  Sender: FDA-Public Use
  Company Number: None

PATIENT
  Age: 69 Year
  Sex: Female
  Weight: 134.5 kg

DRUGS (1)
  1. ULORIC [Suspect]
     Indication: GOUT
     Route: 048

REACTIONS (1)
  - Chromaturia [None]
